FAERS Safety Report 24546692 (Version 1)
Quarter: 2024Q4

REPORT INFORMATION
  Report Type: Spontaneous
  Country: US (occurrence: US)
  Receive Date: 20241024
  Receipt Date: 20241024
  Transmission Date: 20250114
  Serious: Yes (Other)
  Sender: SAMSUNG BIOEPIS
  Company Number: US-SAMSUNG BIOEPIS-SB-2024-31345

PATIENT
  Age: 38 Year
  Sex: Male

DRUGS (2)
  1. INFLIXIMAB [Suspect]
     Active Substance: INFLIXIMAB
     Indication: Immunodeficiency common variable
  2. INFLIXIMAB [Suspect]
     Active Substance: INFLIXIMAB
     Indication: Granuloma

REACTIONS (4)
  - Rubella [Unknown]
  - Off label use [Unknown]
  - Therapeutic response decreased [Unknown]
  - Drug ineffective for unapproved indication [Unknown]
